FAERS Safety Report 7267649-2 (Version None)
Quarter: 2011Q1

REPORT INFORMATION
  Report Type: 
  Country: None (occurrence: None)
  Receive Date: 20110201
  Receipt Date: 20110128
  Transmission Date: 20110831
  Serious: Yes (Death, Hospitalization)
  Sender: FDA-Public Use
  Company Number: DE-ABBOTT-10P-062-0658883-00

PATIENT
  Sex: Female
  Weight: 92 kg

DRUGS (26)
  1. BISOPROLOL [Concomitant]
     Indication: HYPERTENSION
     Route: 048
  2. MARCUMAR [Concomitant]
     Indication: ANTICOAGULANT THERAPY
     Dosage: ACCORDING TO TARGET INR 2-3
  3. ASPIRIN [Concomitant]
     Indication: PRODUCT USED FOR UNKNOWN INDICATION
     Route: 048
     Dates: start: 20100629
  4. CALCIUMACETAT [Concomitant]
     Indication: PRODUCT USED FOR UNKNOWN INDICATION
     Dates: start: 20100629
  5. BENAZEPRIL AL [Concomitant]
     Indication: PRODUCT USED FOR UNKNOWN INDICATION
  6. MCP HEXAL [Concomitant]
     Indication: NAUSEA
  7. LOPERAMID-CT [Concomitant]
     Indication: DIARRHOEA
     Dosage: HARD CAPSULES
  8. BISOHEXAL [Concomitant]
     Indication: PRODUCT USED FOR UNKNOWN INDICATION
  9. TORASEMID [Concomitant]
     Indication: HYPERTENSION
     Route: 048
  10. OSVAREN [Concomitant]
     Indication: PRODUCT USED FOR UNKNOWN INDICATION
  11. RESTEX [Concomitant]
     Indication: RESTLESS LEGS SYNDROME
     Dosage: ON DEMAND
  12. VANCOMYCIN [Concomitant]
     Indication: PRODUCT USED FOR UNKNOWN INDICATION
     Dosage: 500 TO 1000MG
     Route: 042
     Dates: start: 20100622, end: 20100810
  13. DREISAVIT N [Concomitant]
     Indication: PRODUCT USED FOR UNKNOWN INDICATION
  14. TEMGESIC [Concomitant]
     Indication: PRODUCT USED FOR UNKNOWN INDICATION
     Dates: start: 20100912, end: 20100914
  15. NEORECORMON [Concomitant]
     Indication: PRODUCT USED FOR UNKNOWN INDICATION
     Dosage: 20000 IE
     Route: 058
  16. FERRLECIT [Concomitant]
  17. BENAZEPRIL HYDROCHLORIDE [Concomitant]
     Indication: HYPERTENSION
     Route: 048
  18. FRAXIPARIN [Concomitant]
     Indication: SURGERY
     Route: 058
  19. TORASEMID [Concomitant]
     Indication: POLYURIA
  20. NEORECORMON [Concomitant]
     Indication: ANAEMIA
  21. FERRLECIT [Concomitant]
     Indication: PRODUCT USED FOR UNKNOWN INDICATION
  22. ZEMPLAR [Suspect]
     Indication: HYPERPARATHYROIDISM SECONDARY
     Route: 042
     Dates: start: 20100622, end: 20100629
  23. FENTANYL PLASTER [Concomitant]
     Indication: PAIN
     Dosage: PER HOUR EVERY THREE DAYS
  24. VITAMIN B-12 [Concomitant]
     Indication: PRODUCT USED FOR UNKNOWN INDICATION
     Route: 042
  25. RESTEX [Concomitant]
  26. FENTANYL HEXAL MAT [Concomitant]
     Indication: PAIN
     Dosage: 100 MCG/HR MATRIX 23, 12 MG
     Route: 062

REACTIONS (9)
  - ARTERIOSCLEROSIS OBLITERANS [None]
  - PULSE ABSENT [None]
  - OEDEMA PERIPHERAL [None]
  - PAIN IN EXTREMITY [None]
  - ERYTHEMA [None]
  - PERIPHERAL ARTERIAL OCCLUSIVE DISEASE [None]
  - GASTROINTESTINAL HAEMORRHAGE [None]
  - LEG AMPUTATION [None]
  - HYPERPHOSPHATAEMIA [None]
